FAERS Safety Report 25705987 (Version 1)
Quarter: 2025Q3

REPORT INFORMATION
  Report Type: Spontaneous
  Country: US (occurrence: None)
  Receive Date: 20250819
  Receipt Date: 20250819
  Transmission Date: 20251021
  Serious: Yes (Hospitalization)
  Sender: FDA-CTU
  Company Number: None

PATIENT
  Age: 17 Year
  Sex: Male

DRUGS (3)
  1. IBUPROFEN [Suspect]
     Active Substance: IBUPROFEN
     Indication: Pyrexia
     Dates: start: 20250713, end: 20250719
  2. IBUPROFEN [Suspect]
     Active Substance: IBUPROFEN
     Indication: Headache
  3. IBUPROFEN [Suspect]
     Active Substance: IBUPROFEN
     Indication: Oropharyngeal pain

REACTIONS (11)
  - Rash [None]
  - Rash [None]
  - Oropharyngeal pain [None]
  - Hypophagia [None]
  - Blister [None]
  - Stevens-Johnson syndrome [None]
  - Erythema [None]
  - Skin tightness [None]
  - Skin exfoliation [None]
  - Pain of skin [None]
  - Liver function test increased [None]

NARRATIVE: CASE EVENT DATE: 20250719
